FAERS Safety Report 4688293-7 (Version None)
Quarter: 2005Q2

REPORT INFORMATION
  Report Type: 
  Country: None (occurrence: None)
  Receive Date: 20050610
  Receipt Date: 20050310
  Transmission Date: 20051028
  Serious: Yes (Hospitalization, Disabling)
  Sender: FDA-Public Use
  Company Number: US-MERCK-0503USA02340

PATIENT
  Age: 81 Year
  Sex: Male
  Weight: 120 kg

DRUGS (1)
  1. VIOXX [Suspect]
     Indication: ARTHRALGIA
     Route: 048
     Dates: start: 20000501, end: 20030317

REACTIONS (27)
  - ABDOMINAL HERNIA [None]
  - AGITATION [None]
  - ANAEMIA [None]
  - AORTIC VALVE INCOMPETENCE [None]
  - BACTERAEMIA [None]
  - CARDIAC FAILURE CONGESTIVE [None]
  - CARDIAC MURMUR [None]
  - CARDIOVASCULAR DISORDER [None]
  - CELLULITIS [None]
  - DEMENTIA [None]
  - DIVERTICULUM [None]
  - ENCEPHALOPATHY [None]
  - GASTROINTESTINAL ARTERIOVENOUS MALFORMATION [None]
  - GASTROINTESTINAL HAEMORRHAGE [None]
  - HAEMATOCHEZIA [None]
  - HEPATOMEGALY [None]
  - HYPOTHYROIDISM [None]
  - IRON DEFICIENCY ANAEMIA [None]
  - LOWER GASTROINTESTINAL HAEMORRHAGE [None]
  - MENTAL STATUS CHANGES [None]
  - METABOLIC ALKALOSIS [None]
  - MITRAL VALVE INCOMPETENCE [None]
  - MULTI-ORGAN DISORDER [None]
  - MYOCARDIAL INFARCTION [None]
  - PAIN [None]
  - SPEECH DISORDER [None]
  - TRICUSPID VALVE INCOMPETENCE [None]
